FAERS Safety Report 11659921 (Version 1)
Quarter: 2015Q4

REPORT INFORMATION
  Report Type: Spontaneous
  Country: CA (occurrence: CA)
  Receive Date: 20151026
  Receipt Date: 20151026
  Transmission Date: 20160304
  Serious: Yes (Death)
  Sender: FDA-Public Use
  Company Number: CA-JNJFOC-20151017371

PATIENT
  Age: 72 Year
  Sex: Male

DRUGS (7)
  1. NOVO-CLINDAMYCIN [Suspect]
     Active Substance: CLINDAMYCIN HYDROCHLORIDE
     Indication: WOUND INFECTION
     Route: 048
  2. NORVIR [Concomitant]
     Active Substance: RITONAVIR
     Route: 065
  3. FINASTERIDE. [Concomitant]
     Active Substance: FINASTERIDE
     Route: 065
  4. INTELENCE [Suspect]
     Active Substance: ETRAVIRINE
     Indication: HIV INFECTION
     Route: 048
  5. PREZISTA [Concomitant]
     Active Substance: DARUNAVIR ETHANOLATE
     Route: 065
  6. ALLOPURINOL. [Concomitant]
     Active Substance: ALLOPURINOL
     Route: 065
  7. ATORVASTATIN [Concomitant]
     Active Substance: ATORVASTATIN
     Route: 065

REACTIONS (8)
  - Pneumonia [Fatal]
  - Foreign body [Fatal]
  - Dehydration [Fatal]
  - Dysphagia [Fatal]
  - Oesophageal pain [Fatal]
  - Burn oesophageal [Fatal]
  - Diarrhoea [Fatal]
  - Oesophageal obstruction [Fatal]
